FAERS Safety Report 9321698 (Version 1)
Quarter: 2013Q2

REPORT INFORMATION
  Report Type: Spontaneous
  Country: BR (occurrence: None)
  Receive Date: 20130529
  Receipt Date: 20130529
  Transmission Date: 20140414
  Serious: Yes (Other)
  Sender: FDA-Public Use
  Company Number: ENT 2013-0089

PATIENT
  Age: 82 Year
  Sex: Male

DRUGS (1)
  1. ENTACAPONE [Suspect]
     Indication: MOTOR DYSFUNCTION
     Dosage: THREE DOSES OF 200 MG IN ONE DAY.

REACTIONS (7)
  - Drug ineffective [None]
  - Hallucination, visual [None]
  - Cognitive disorder [None]
  - Dementia [None]
  - Bedridden [None]
  - Motor dysfunction [None]
  - Condition aggravated [None]
